FAERS Safety Report 24157587 (Version 1)
Quarter: 2024Q3

REPORT INFORMATION
  Report Type: Spontaneous
  Country: CN (occurrence: CN)
  Receive Date: 20240731
  Receipt Date: 20240731
  Transmission Date: 20241016
  Serious: Yes (Life-Threatening, Disabling)
  Sender: BAYER
  Company Number: CN-BAYER-2024A110542

PATIENT
  Age: 56 Year
  Sex: Male

DRUGS (1)
  1. GADOBUTROL [Suspect]
     Active Substance: GADOBUTROL
     Indication: Magnetic resonance imaging bone
     Dosage: 8 ML, ONCE
     Route: 041
     Dates: start: 20240711, end: 20240711

REACTIONS (8)
  - Anaphylactic shock [Recovering/Resolving]
  - Loss of consciousness [None]
  - Cardiac arrest [Recovered/Resolved]
  - Respiratory arrest [Recovered/Resolved]
  - Blood pressure immeasurable [None]
  - Flushing [None]
  - Foaming at mouth [None]
  - Cold sweat [None]

NARRATIVE: CASE EVENT DATE: 20240711
